FAERS Safety Report 14339747 (Version 6)
Quarter: 2019Q4

REPORT INFORMATION
  Report Type: Report from Study
  Country: BR (occurrence: BR)
  Receive Date: 20171230
  Receipt Date: 20191216
  Transmission Date: 20200122
  Serious: Yes (Death, Life-Threatening, Hospitalization, Other)
  Sender: FDA-Public Use
  Company Number: PHHY2017BR191628

PATIENT
  Age: 73 Year
  Sex: Female
  Weight: 84 kg

DRUGS (21)
  1. ENTRESTO [Suspect]
     Active Substance: SACUBITRIL\VALSARTAN
     Indication: DIABETES MELLITUS
     Dosage: 1 DF, BID (49/51) (3 YEARS AGO)
     Route: 048
  2. SPIRONOLACTONE. [Concomitant]
     Active Substance: SPIRONOLACTONE
     Indication: RENAL DISORDER
     Dosage: 1 DF, QOD (3 YEARS AGO)
     Route: 048
  3. ESPIRONOLACTONA [Concomitant]
     Active Substance: SPIRONOLACTONE
     Indication: CARDIAC FAILURE
     Dosage: 1 DF, QD
     Route: 048
  4. SANDOSTATIN LAR DEPOT [Suspect]
     Active Substance: OCTREOTIDE ACETATE
     Indication: NEOPLASM
     Dosage: 20 MG, QMO (EVERY 28 DAYS)
     Route: 030
     Dates: start: 20181128
  5. GEMCITABINE. [Suspect]
     Active Substance: GEMCITABINE
     Indication: PRODUCT USED FOR UNKNOWN INDICATION
     Route: 065
  6. SELOZOK [Concomitant]
     Active Substance: METOPROLOL SUCCINATE
     Indication: CARDIAC FAILURE
     Dosage: 2 DF, BID
     Route: 048
  7. SANDOSTATIN LAR DEPOT [Suspect]
     Active Substance: OCTREOTIDE ACETATE
     Indication: ACROMEGALY
     Dosage: 30 MG, QMO (EVERY 28 DAYS)
     Route: 030
     Dates: start: 20160701
  8. FUROSEMIDE. [Suspect]
     Active Substance: FUROSEMIDE
     Indication: MICTURITION DISORDER
     Dosage: 1 DF, QD (3 YEARS AGO)
     Route: 048
  9. PURAN [Concomitant]
     Active Substance: LEVOTHYROXINE SODIUM
     Indication: HYPOTHYROIDISM
     Dosage: 1 DF, QD (3 YEARS AGO)
     Route: 048
  10. SANDOSTATIN LAR DEPOT [Suspect]
     Active Substance: OCTREOTIDE ACETATE
     Indication: PITUITARY TUMOUR
     Dosage: 1 AMPOULE (20 MG), QMO (5 YEARS AGO)
     Route: 042
  11. SANDOSTATIN LAR DEPOT [Suspect]
     Active Substance: OCTREOTIDE ACETATE
     Dosage: 20 MG, QMO (EVERY 28 DAYS)
     Route: 030
     Dates: start: 20181128, end: 20191004
  12. FUROSEMIDE. [Suspect]
     Active Substance: FUROSEMIDE
     Indication: CARDIAC FAILURE
  13. CARBOPLATIN. [Suspect]
     Active Substance: CARBOPLATIN
     Indication: PRODUCT USED FOR UNKNOWN INDICATION
     Dosage: UNK
     Route: 065
     Dates: start: 2017
  14. SELOZOK [Concomitant]
     Active Substance: METOPROLOL SUCCINATE
     Dosage: 50 MG, BID
     Route: 048
  15. XARELTO [Concomitant]
     Active Substance: RIVAROXABAN
     Indication: ANTICOAGULANT THERAPY
     Dosage: 1 DF, QD
     Route: 048
  16. MORPHINE [Concomitant]
     Active Substance: MORPHINE
     Indication: PAIN
     Route: 065
  17. ENTRESTO [Suspect]
     Active Substance: SACUBITRIL\VALSARTAN
     Indication: CARDIAC FAILURE
     Dosage: 2 DF, QD (1 DF Q12 H)
     Route: 048
  18. ALLOPURINOL. [Suspect]
     Active Substance: ALLOPURINOL
     Indication: RENAL DISORDER
     Dosage: 1 DF, QOD (3 YEARS AGO)
     Route: 048
  19. ALLOPURINOL. [Suspect]
     Active Substance: ALLOPURINOL
     Indication: CARDIAC DISORDER
  20. ALLOPURINOL. [Suspect]
     Active Substance: ALLOPURINOL
     Indication: BLOOD URIC ACID ABNORMAL
     Dosage: 1 DF, QD
     Route: 048
  21. SELOZOK [Concomitant]
     Active Substance: METOPROLOL SUCCINATE
     Indication: HYPERTENSION
     Dosage: 1 DF, BID (3 YEARS AGO) (Q12H)
     Route: 048

REACTIONS (47)
  - Ascites [Not Recovered/Not Resolved]
  - Blood pressure decreased [Recovering/Resolving]
  - Brain neoplasm [Unknown]
  - Diarrhoea haemorrhagic [Recovering/Resolving]
  - Hypersensitivity [Unknown]
  - Gait disturbance [Unknown]
  - Abdominal distension [Unknown]
  - Drug hypersensitivity [Recovered/Resolved]
  - Vomiting [Unknown]
  - Abdominal neoplasm [Unknown]
  - Fatigue [Recovered/Resolved]
  - Flatulence [Unknown]
  - Death [Fatal]
  - Colitis [Recovering/Resolving]
  - Metastases to lung [Recovered/Resolved]
  - Diabetes mellitus [Recovering/Resolving]
  - Cardiac disorder [Recovering/Resolving]
  - Feeling abnormal [Not Recovered/Not Resolved]
  - Nodule [Unknown]
  - Vomiting [Recovered/Resolved]
  - Malaise [Recovered/Resolved]
  - Abdominal pain upper [Unknown]
  - Intestinal obstruction [Unknown]
  - Sneezing [Unknown]
  - Product use in unapproved indication [Unknown]
  - Dehydration [Recovered/Resolved]
  - Diarrhoea [Unknown]
  - Erythema [Unknown]
  - Ovarian cancer [Unknown]
  - Lung neoplasm malignant [Recovering/Resolving]
  - Abdominal pain [Not Recovered/Not Resolved]
  - Asthenia [Recovering/Resolving]
  - Weight decreased [Unknown]
  - Neoplasm progression [Unknown]
  - Recurrent cancer [Unknown]
  - Spinal fracture [Not Recovered/Not Resolved]
  - Visual impairment [Not Recovered/Not Resolved]
  - Pain [Recovering/Resolving]
  - Malaise [Unknown]
  - Incorrect route of product administration [Unknown]
  - Back pain [Not Recovered/Not Resolved]
  - Dyspnoea [Recovered/Resolved]
  - Cardiac failure [Unknown]
  - Conjunctivitis [Recovered/Resolved]
  - Abdominal mass [Unknown]
  - Peritoneal carcinoma metastatic [Not Recovered/Not Resolved]
  - Metastasis [Unknown]

NARRATIVE: CASE EVENT DATE: 2015
